FAERS Safety Report 7691309-7 (Version None)
Quarter: 2011Q3

REPORT INFORMATION
  Report Type: 
  Country: None (occurrence: None)
  Receive Date: 20110818
  Receipt Date: 20100510
  Transmission Date: 20111222
  Serious: Yes (Hospitalization)
  Sender: FDA-Public Use
  Company Number: US-UCBSA-011772

PATIENT
  Sex: Female
  Weight: 2 kg

DRUGS (1)
  1. CIMZIA [Suspect]
     Indication: CROHN'S DISEASE
     Dates: start: 20090123

REACTIONS (3)
  - MATERNAL EXPOSURE DURING PREGNANCY [None]
  - VIRAL INFECTION [None]
  - BREAST FEEDING [None]
